FAERS Safety Report 5548198-6 (Version None)
Quarter: 2007Q4

REPORT INFORMATION
  Report Type: 
  Country: None (occurrence: None)
  Receive Date: 20071128
  Receipt Date: 20070418
  Transmission Date: 20080405
  Serious: Yes (Other)
  Sender: FDA-Public Use
  Company Number: 2007020975

PATIENT
  Age: 37 Year
  Sex: Male
  Weight: 130.2 kg

DRUGS (3)
  1. LIPITOR [Suspect]
  2. CRESTOR [Suspect]
     Indication: HYPERLIPIDAEMIA
     Dosage: 10 MG (10 MG, DAILY: EVERY DAY), ORAL
     Route: 048
     Dates: start: 20040101, end: 20050801
  3. AVALIDE [Concomitant]

REACTIONS (1)
  - BLOOD CREATINE PHOSPHOKINASE INCREASED [None]
